FAERS Safety Report 10898817 (Version 1)
Quarter: 2015Q1

REPORT INFORMATION
  Report Type: Report from Study
  Country: FR (occurrence: FR)
  Receive Date: 20150309
  Receipt Date: 20150309
  Transmission Date: 20150721
  Serious: Yes (Hospitalization)
  Sender: FDA-Public Use
  Company Number: FR-BAYER-2013-159471

PATIENT
  Age: 81 Year
  Sex: Male
  Weight: 59 kg

DRUGS (9)
  1. REGORAFENIB [Suspect]
     Active Substance: REGORAFENIB
     Indication: HEPATOCELLULAR CARCINOMA
     Dosage: 160 MG, QD
     Route: 048
     Dates: start: 20130925, end: 20131002
  2. KAYEXALATE [Concomitant]
     Active Substance: SODIUM POLYSTYRENE SULFONATE
     Indication: HYPERKALAEMIA
     Dosage: DAILY DOSE 15 G
     Route: 048
     Dates: start: 20131104
  3. REGORAFENIB [Suspect]
     Active Substance: REGORAFENIB
     Indication: HEPATOCELLULAR CARCINOMA
     Dosage: 120 MG, QD
     Route: 048
     Dates: start: 20131009, end: 20131016
  4. ESIDREX [Concomitant]
     Active Substance: HYDROCHLOROTHIAZIDE
     Indication: HYPERTENSION
     Dosage: DAILY DOSE 25 MG
     Route: 048
     Dates: start: 20131124
  5. REGORAFENIB [Suspect]
     Active Substance: REGORAFENIB
     Indication: HEPATOCELLULAR CARCINOMA
     Dosage: 160 MG, QD
     Route: 048
     Dates: start: 20130828, end: 20130918
  6. MOTILIUM [Concomitant]
     Active Substance: DOMPERIDONE
     Indication: GASTROOESOPHAGEAL REFLUX DISEASE
     Dosage: UNK
     Dates: start: 20131102
  7. REGORAFENIB [Suspect]
     Active Substance: REGORAFENIB
     Indication: HEPATOCELLULAR CARCINOMA
     Dosage: 160 MG, QD
     Route: 048
     Dates: start: 20131023, end: 20140106
  8. AMLOR [Concomitant]
     Active Substance: AMLODIPINE BESYLATE
     Indication: HYPERTENSION
     Dosage: DAILY DOSE 10 MG
     Route: 048
     Dates: start: 20130826
  9. OLMETEC [Concomitant]
     Active Substance: OLMESARTAN MEDOXOMIL
     Indication: HYPERTENSION
     Dosage: DAILY DOSE 40 MG
     Route: 048
     Dates: start: 20131124

REACTIONS (1)
  - General physical health deterioration [Recovered/Resolved with Sequelae]

NARRATIVE: CASE EVENT DATE: 20131220
